FAERS Safety Report 19836907 (Version 6)
Quarter: 2024Q1

REPORT INFORMATION
  Report Type: Report from Study
  Country: US (occurrence: US)
  Receive Date: 20210914
  Receipt Date: 20240312
  Transmission Date: 20240409
  Serious: Yes (Hospitalization, Other)
  Sender: FDA-Public Use
  Company Number: US-TAKEDA-2021TUS055994

PATIENT
  Age: 74 Year
  Sex: Female

DRUGS (7)
  1. VONICOG ALFA [Suspect]
     Active Substance: VONICOG ALFA
     Indication: Haemorrhage
     Dosage: 3600 INTERNATIONAL UNIT
     Route: 065
  2. VONICOG ALFA [Suspect]
     Active Substance: VONICOG ALFA
     Dosage: 3600 INTERNATIONAL UNIT
     Route: 042
  3. VONICOG ALFA [Suspect]
     Active Substance: VONICOG ALFA
     Dosage: 3900 INTERNATIONAL UNIT
     Route: 042
  4. VONICOG ALFA [Suspect]
     Active Substance: VONICOG ALFA
     Dosage: 3900 INTERNATIONAL UNIT
     Route: 065
  5. VONICOG ALFA [Suspect]
     Active Substance: VONICOG ALFA
     Dosage: 5200 INTERNATIONAL UNIT, Q72H
     Route: 065
  6. VONICOG ALFA [Suspect]
     Active Substance: VONICOG ALFA
     Dosage: 4800 INTERNATIONAL UNIT
     Route: 042
  7. TRANEXAMIC ACID [Suspect]
     Active Substance: TRANEXAMIC ACID
     Indication: Product used for unknown indication
     Dosage: UNK
     Route: 065

REACTIONS (6)
  - Gastrointestinal haemorrhage [Unknown]
  - Haemoglobin decreased [Unknown]
  - Palpitations [Unknown]
  - Faeces discoloured [Unknown]
  - Poor venous access [Unknown]
  - Inappropriate schedule of product administration [Unknown]

NARRATIVE: CASE EVENT DATE: 20210901
